FAERS Safety Report 4360187-6 (Version None)
Quarter: 2004Q2

REPORT INFORMATION
  Report Type: 
  Country: None (occurrence: None)
  Receive Date: 20040513
  Receipt Date: 20040505
  Transmission Date: 20050107
  Serious: Yes (Hospitalization)
  Sender: FDA-Public Use
  Company Number: US-JNJFOC-20040501153

PATIENT
  Age: 75 Year
  Sex: Male

DRUGS (11)
  1. DURAGESIC [Suspect]
     Indication: PAIN
     Dosage: 75 UG/HR, 1 IN 72 HOUR, TRANSDERMAL
     Route: 062
     Dates: start: 19990101
  2. COMBIVENT [Concomitant]
  3. PREDNISONE [Concomitant]
  4. HYDROCODONE (HYDROCODONE) [Concomitant]
  5. GLYBURIDE [Concomitant]
  6. LEXAPRO [Concomitant]
  7. THERAVENT (THEOPHYLLINE) [Concomitant]
  8. NASACORT [Concomitant]
  9. ALLEGRA [Concomitant]
  10. ALPRAZOLAM [Concomitant]
  11. MORPHINE [Concomitant]

REACTIONS (2)
  - PNEUMONIA [None]
  - SOMNOLENCE [None]
